FAERS Safety Report 20091151 (Version 1)
Quarter: 2021Q4

REPORT INFORMATION
  Report Type: Spontaneous
  Country: DE (occurrence: None)
  Receive Date: 20211119
  Receipt Date: 20211119
  Transmission Date: 20220303
  Serious: Yes (Other)
  Sender: FDA-Public Use
  Company Number: 2021A805942

PATIENT
  Age: 52 Year
  Sex: Female
  Weight: 124 kg

DRUGS (10)
  1. DAPAGLIFLOZIN [Suspect]
     Active Substance: DAPAGLIFLOZIN
     Route: 048
     Dates: start: 2015
  2. METFORMIN [Concomitant]
     Active Substance: METFORMIN HYDROCHLORIDE
     Dosage: 2 X 500 MG
  3. RAMIPRIL [Concomitant]
     Active Substance: RAMIPRIL
     Dosage: 5 1-0-0
  4. THYROXINE [Concomitant]
     Active Substance: LEVOTHYROXINE
     Dosage: 125 UG 1-0-0
  5. EXENATIDE [Concomitant]
     Active Substance: EXENATIDE
     Dosage: 2 X 10 UG DAILY
     Route: 058
  6. LIRAGLUTIDE [Concomitant]
     Active Substance: LIRAGLUTIDE
     Route: 058
  7. LIRAGLUTIDE [Concomitant]
     Active Substance: LIRAGLUTIDE
     Route: 058
  8. INSULIN GLARGINE [Concomitant]
     Active Substance: INSULIN GLARGINE
     Dosage: 24 IU
  9. INSULIN GLARGINE [Concomitant]
     Active Substance: INSULIN GLARGINE
     Dosage: 66 IU PER DAY
  10. DULAGLUTIDE [Concomitant]
     Active Substance: DULAGLUTIDE
     Dosage: 0.75 MG ONCE PER WEEK
     Route: 058

REACTIONS (3)
  - Weight decreased [Unknown]
  - Weight increased [Unknown]
  - Insulin resistance [Unknown]

NARRATIVE: CASE EVENT DATE: 20160301
